FAERS Safety Report 21564536 (Version 1)
Quarter: 2022Q4

REPORT INFORMATION
  Report Type: Spontaneous
  Country: US (occurrence: US)
  Receive Date: 20221108
  Receipt Date: 20221108
  Transmission Date: 20230113
  Serious: No
  Sender: FDA-Public Use
  Company Number: US-009507513-2210USA003438

PATIENT
  Age: 33 Year
  Sex: Male

DRUGS (2)
  1. TEMODAR [Suspect]
     Active Substance: TEMOZOLOMIDE
     Indication: Anaplastic large cell lymphoma T- and null-cell types
     Dosage: A TOTAL OF 12 CYCLES
     Route: 048
  2. METHOTREXATE [Concomitant]
     Active Substance: METHOTREXATE
     Indication: Anaplastic large cell lymphoma T- and null-cell types
     Dosage: EIGHT CYCLES FOLLOWED BY TWO CONSOLIDATION CYCLES

REACTIONS (1)
  - Product use in unapproved indication [Unknown]
